FAERS Safety Report 8220405-0 (Version None)
Quarter: 2012Q1

REPORT INFORMATION
  Report Type: 
  Country: None (occurrence: None)
  Receive Date: 20120316
  Receipt Date: 20120306
  Transmission Date: 20120608
  Serious: Yes (Other)
  Sender: FDA-Public Use
  Company Number: 2012SP012572

PATIENT
  Sex: Male

DRUGS (2)
  1. PEG-INTRON [Suspect]
     Indication: HEPATITIS C
     Dates: start: 20120210
  2. RIBAVIRIN [Suspect]
     Indication: HEPATITIS C
     Dates: start: 20120210

REACTIONS (2)
  - HYPERTENSION [None]
  - VARICES OESOPHAGEAL [None]
